FAERS Safety Report 18104447 (Version 1)
Quarter: 2020Q3

REPORT INFORMATION
  Report Type: Spontaneous
  Country: BR (occurrence: BR)
  Receive Date: 20200803
  Receipt Date: 20200803
  Transmission Date: 20201103
  Serious: Yes (Other)
  Sender: FDA-Public Use
  Company Number: NVSC2020BR214282

PATIENT
  Sex: Female

DRUGS (6)
  1. CATAFLAM [Suspect]
     Active Substance: DICLOFENAC POTASSIUM
     Indication: MALAISE
  2. CATAFLAM [Suspect]
     Active Substance: DICLOFENAC POTASSIUM
     Indication: PAIN IN EXTREMITY
     Dosage: UNK
     Route: 065
  3. CATAFLAM [Suspect]
     Active Substance: DICLOFENAC POTASSIUM
     Indication: PHARYNGEAL INFLAMMATION
  4. CATAFLAM [Suspect]
     Active Substance: DICLOFENAC POTASSIUM
     Indication: PAIN IN EXTREMITY
     Dosage: UNK
     Route: 065
  5. CATAFLAM [Suspect]
     Active Substance: DICLOFENAC POTASSIUM
     Indication: MALAISE
  6. CATAFLAM [Suspect]
     Active Substance: DICLOFENAC POTASSIUM
     Indication: PHARYNGEAL INFLAMMATION

REACTIONS (2)
  - Product dispensing error [Unknown]
  - Deafness [Unknown]
